FAERS Safety Report 5725012-7 (Version None)
Quarter: 2008Q2

REPORT INFORMATION
  Report Type: 
  Country: None (occurrence: None)
  Receive Date: 20080501
  Receipt Date: 20080422
  Transmission Date: 20081010
  Serious: Yes (Hospitalization)
  Sender: FDA-Public Use
  Company Number: ES-ELI_LILLY_AND_COMPANY-ES200804006026

PATIENT
  Age: 48 Year
  Sex: Female

DRUGS (4)
  1. FORTEO [Suspect]
     Indication: OSTEOPOROSIS
     Dosage: 20 UG, UNK
     Route: 058
     Dates: start: 20080101
  2. CALCIUM [Concomitant]
     Indication: OSTEOPOROSIS
  3. DIAZEPAM [Concomitant]
     Indication: DEPRESSION
  4. NOLOTIL [Concomitant]
     Indication: PAIN

REACTIONS (7)
  - ANOREXIA [None]
  - BONE PAIN [None]
  - DISORIENTATION [None]
  - DIZZINESS [None]
  - INCONTINENCE [None]
  - LOSS OF CONSCIOUSNESS [None]
  - WEIGHT DECREASED [None]
